FAERS Safety Report 11318143 (Version 1)
Quarter: 2015Q3

REPORT INFORMATION
  Report Type: Other
  Country: US (occurrence: US)
  Receive Date: 20150728
  Receipt Date: 20150728
  Transmission Date: 20151125
  Serious: Yes (Other)
  Sender: FDA-Public Use
  Company Number: US-SHIRE-US201508411

PATIENT
  Age: 50 Year
  Sex: Male

DRUGS (3)
  1. ADDERALL XR [Suspect]
     Active Substance: AMPHETAMINE ASPARTATE\AMPHETAMINE SULFATE\DEXTROAMPHETAMINE SACCHARATE\DEXTROAMPHETAMINE SULFATE
     Indication: ATTENTION DEFICIT/HYPERACTIVITY DISORDER
     Dosage: 15 MG, UNKNOWN
     Route: 048
  2. PROVIGIL [Concomitant]
     Active Substance: MODAFINIL
     Indication: SLEEP APNOEA SYNDROME
  3. PROVIGIL [Concomitant]
     Active Substance: MODAFINIL
     Indication: POOR QUALITY SLEEP
     Dosage: UNK, UNKNOWN
     Route: 065

REACTIONS (3)
  - Arrhythmia [Not Recovered/Not Resolved]
  - Dry mouth [Not Recovered/Not Resolved]
  - Irritability [Not Recovered/Not Resolved]
